FAERS Safety Report 16300004 (Version 1)
Quarter: 2019Q2

REPORT INFORMATION
  Report Type: Spontaneous
  Country: US (occurrence: US)
  Receive Date: 20190510
  Receipt Date: 20190510
  Transmission Date: 20190711
  Serious: Yes (Hospitalization, Other)
  Sender: FDA-Public Use
  Company Number: US-BIOGEN-2019BI00733664

PATIENT
  Sex: Female

DRUGS (1)
  1. TECFIDERA [Suspect]
     Active Substance: DIMETHYL FUMARATE
     Indication: MULTIPLE SCLEROSIS
     Route: 065
     Dates: start: 20170530, end: 201904

REACTIONS (4)
  - Gait disturbance [Not Recovered/Not Resolved]
  - Blood glucose decreased [Unknown]
  - Diabetes mellitus [Unknown]
  - Altered state of consciousness [Unknown]
